FAERS Safety Report 4436340-X (Version None)
Quarter: 2004Q3

REPORT INFORMATION
  Report Type: 
  Country: None (occurrence: None)
  Receive Date: 20040728
  Receipt Date: 20040317
  Transmission Date: 20050211
  Serious: Yes (Other)
  Sender: FDA-Public Use
  Company Number: 204826

PATIENT
  Age: 61 Year
  Sex: Male

DRUGS (9)
  1. RITUXAN [Suspect]
     Indication: NON-HODGKIN'S LYMPHOMA
     Dosage: 375 MG/M2, 1/WEEK, INTRAVENOUS
     Route: 042
     Dates: start: 20020729, end: 20021203
  2. RITUXAN [Suspect]
     Indication: NON-HODGKIN'S LYMPHOMA
     Dosage: 375 MG/M2, 1/WEEK, INTRAVENOUS
     Route: 042
     Dates: start: 20030612, end: 20030703
  3. RITUXAN [Suspect]
     Indication: NON-HODGKIN'S LYMPHOMA
     Dosage: 375 MG/M2, 1/WEEK, INTRAVENOUS
     Route: 042
     Dates: start: 20031028, end: 20031103
  4. FLUDARABINE PHOSPHATE [Concomitant]
  5. MULTIVIT W/IRON (IRON NOS, MULTIVITAMINS NOS) [Concomitant]
  6. AMBIEN [Concomitant]
  7. ALLOPURINOL [Concomitant]
  8. PRILOSEC [Concomitant]
  9. ALBUTEROL INHALER (ALBUTEROL, ALBUTEROL SULFATE) [Concomitant]

REACTIONS (1)
  - MOUTH ULCERATION [None]
